FAERS Safety Report 7110922-9 (Version None)
Quarter: 2010Q4

REPORT INFORMATION
  Report Type: 
  Country: None (occurrence: None)
  Receive Date: 20101118
  Receipt Date: 20101014
  Transmission Date: 20110411
  Serious: Yes (Hospitalization)
  Sender: FDA-Public Use
  Company Number: DE-AMGEN-DEUCT2010000265

PATIENT

DRUGS (3)
  1. ENBREL [Suspect]
     Indication: ANKYLOSING SPONDYLITIS
     Route: 058
     Dates: start: 20050622, end: 20100101
  2. DICLOFENAC SODIUM [Concomitant]
     Dosage: 100 MG, FREQUENCY UNKNOWN
     Route: 048
  3. PREDNISOLONE [Concomitant]
     Dosage: 10 MG, FREQUENCY UNKNOWN
     Route: 048

REACTIONS (2)
  - LOWER LIMB FRACTURE [None]
  - WOUND INFECTION [None]
